FAERS Safety Report 6666505-8 (Version None)
Quarter: 2010Q2

REPORT INFORMATION
  Report Type: 
  Country: None (occurrence: None)
  Receive Date: 20100402
  Receipt Date: 20100324
  Transmission Date: 20101027
  Serious: Yes (Death)
  Sender: FDA-Public Use
  Company Number: JP-ABBOTT-10P-087-0623391-00

PATIENT
  Age: 72 Year
  Sex: Male
  Weight: 41 kg

DRUGS (16)
  1. KLARICID TABLETS [Suspect]
     Indication: ATYPICAL MYCOBACTERIAL INFECTION
     Route: 048
     Dates: start: 20090620, end: 20091112
  2. RIFAMPICIN [Suspect]
     Indication: ATYPICAL MYCOBACTERIAL INFECTION
     Route: 048
     Dates: start: 20090620, end: 20091112
  3. ETHAMBUTOL HYDROCHLORIDE [Suspect]
     Indication: ATYPICAL MYCOBACTERIAL INFECTION
     Route: 048
     Dates: start: 20090620, end: 20091012
  4. CIPROFLOXACIN [Suspect]
     Indication: ATYPICAL MYCOBACTERIAL INFECTION
     Route: 050
     Dates: start: 20090904, end: 20090917
  5. CIPROFLOXACIN [Suspect]
     Route: 050
     Dates: start: 20090923, end: 20090927
  6. FERRUM [Concomitant]
     Indication: DRUG USE FOR UNKNOWN INDICATION
     Route: 048
     Dates: start: 20090917, end: 20091005
  7. UNASYN [Concomitant]
     Indication: DRUG USE FOR UNKNOWN INDICATION
     Route: 050
     Dates: start: 20090928, end: 20091007
  8. UBIRON [Concomitant]
     Indication: PROPHYLAXIS
     Route: 048
     Dates: start: 20090701, end: 20091112
  9. AMPHOTERICIN B [Concomitant]
     Indication: PROPHYLAXIS
     Dates: start: 20090630, end: 20090709
  10. AMPHOTERICIN B [Concomitant]
     Indication: DISEASE COMPLICATION
  11. MAGNESIUM OXIDE [Concomitant]
     Indication: PROPHYLAXIS
     Route: 048
  12. MAGNESIUM OXIDE [Concomitant]
     Indication: DISEASE COMPLICATION
  13. LOXONIN [Concomitant]
     Indication: PROPHYLAXIS
     Route: 048
     Dates: start: 20090909, end: 20091001
  14. PARIET [Concomitant]
     Indication: PROPHYLAXIS
     Route: 048
     Dates: start: 20090909, end: 20091114
  15. LASIX [Concomitant]
     Indication: PROPHYLAXIS
     Route: 048
     Dates: start: 20090909, end: 20090914
  16. LASIX [Concomitant]
     Indication: DISEASE COMPLICATION

REACTIONS (4)
  - ATYPICAL MYCOBACTERIAL INFECTION [None]
  - DEPRESSED LEVEL OF CONSCIOUSNESS [None]
  - LUNG DISORDER [None]
  - RESPIRATORY FAILURE [None]
